FAERS Safety Report 15807562 (Version 1)
Quarter: 2019Q1

REPORT INFORMATION
  Report Type: Spontaneous
  Country: US (occurrence: US)
  Receive Date: 20190110
  Receipt Date: 20190110
  Transmission Date: 20190417
  Serious: Yes (Other)
  Sender: FDA-Public Use
  Company Number: None

PATIENT
  Age: 42 Year
  Sex: Female
  Weight: 71.2 kg

DRUGS (1)
  1. INJECTAFER [Suspect]
     Active Substance: FERRIC CARBOXYMALTOSE
     Indication: ANAEMIA
     Dosage: ?          OTHER FREQUENCY:ONCE WEEKLY X 2;?
     Route: 041
     Dates: start: 20190109, end: 20190109

REACTIONS (4)
  - Muscle tightness [None]
  - Hot flush [None]
  - Cough [None]
  - Injection related reaction [None]

NARRATIVE: CASE EVENT DATE: 20190109
